FAERS Safety Report 4288517-4 (Version None)
Quarter: 2004Q1

REPORT INFORMATION
  Report Type: 
  Country: None (occurrence: None)
  Receive Date: 20040205
  Receipt Date: 20040119
  Transmission Date: 20041129
  Serious: Yes (Hospitalization)
  Sender: FDA-Public Use
  Company Number: GBS030813551

PATIENT
  Age: 48 Year
  Sex: Male
  Weight: 95 kg

DRUGS (3)
  1. CIALIS [Suspect]
     Indication: ERECTILE DYSFUNCTION
     Dosage: 10 MG/AS NEEDED
     Dates: start: 20030810, end: 20030810
  2. EFFEXOR [Concomitant]
  3. DALMANE [Concomitant]

REACTIONS (6)
  - BRAIN OEDEMA [None]
  - CEREBRAL HAEMATOMA [None]
  - CEREBRAL HAEMORRHAGE [None]
  - HEMIANOPIA HOMONYMOUS [None]
  - HEMIPLEGIA [None]
  - THROMBOSIS [None]
